FAERS Safety Report 20069352 (Version 1)
Quarter: 2021Q4

REPORT INFORMATION
  Report Type: Spontaneous
  Country: US (occurrence: None)
  Receive Date: 20211112
  Receipt Date: 20211112
  Transmission Date: 20220303
  Serious: No
  Sender: FDA-Public Use
  Company Number: None

PATIENT
  Age: 77 Year
  Sex: Male
  Weight: 85.95 kg

DRUGS (15)
  1. ERLEADA [Suspect]
     Active Substance: APALUTAMIDE
     Indication: Prostate cancer
     Dosage: FREQUENCY : DAILY;?
     Route: 048
     Dates: start: 20210215
  2. DULOXETINE [Concomitant]
     Active Substance: DULOXETINE
  3. LORAZEPAM [Concomitant]
     Active Substance: LORAZEPAM
  4. VITAMIN D [Concomitant]
     Active Substance: VITAMIN D NOS
  5. FOLIC ACID [Concomitant]
     Active Substance: FOLIC ACID
  6. COENZYME Q10 [Concomitant]
     Active Substance: DIETARY SUPPLEMENT\UBIDECARENONE
  7. ZETIA [Concomitant]
     Active Substance: EZETIMIBE
  8. LOSARTAN [Concomitant]
     Active Substance: LOSARTAN
  9. PLAVIX [Concomitant]
     Active Substance: CLOPIDOGREL BISULFATE
  10. ZOLEDRONIC ACID [Concomitant]
     Active Substance: ZOLEDRONIC ACID
  11. Calcium Polycarbophil 625mg [Concomitant]
  12. HYDROCHLOROTHIAZIDE [Concomitant]
     Active Substance: HYDROCHLOROTHIAZIDE
  13. LATANOPROST [Concomitant]
     Active Substance: LATANOPROST
  14. ONDANSETRON [Concomitant]
     Active Substance: ONDANSETRON
  15. Ubiquinol 100mg [Concomitant]

REACTIONS (2)
  - Hot flush [None]
  - Fatigue [None]

NARRATIVE: CASE EVENT DATE: 20211111
